FAERS Safety Report 7984605-7 (Version None)
Quarter: 2011Q4

REPORT INFORMATION
  Report Type: 
  Country: None (occurrence: None)
  Receive Date: 20111216
  Receipt Date: 20111208
  Transmission Date: 20120403
  Serious: Yes (Other)
  Sender: FDA-Public Use
  Company Number: US-JNJFOC-20111204737

PATIENT
  Sex: Female
  Weight: 54.43 kg

DRUGS (2)
  1. EMERGENCY CONTRACEPTION PILL [Suspect]
     Indication: CONTRACEPTION
     Route: 048
     Dates: start: 20111101
  2. ORTHO EVRA [Suspect]
     Indication: CONTRACEPTION
     Route: 062
     Dates: start: 20110501, end: 20111001

REACTIONS (4)
  - WITHDRAWAL BLEED [None]
  - MATERNAL EXPOSURE DURING PREGNANCY [None]
  - PREGNANCY WITH CONTRACEPTIVE PATCH [None]
  - ABORTION [None]
